FAERS Safety Report 18980848 (Version 1)
Quarter: 2021Q1

REPORT INFORMATION
  Report Type: Spontaneous
  Country: US (occurrence: US)
  Receive Date: 20210308
  Receipt Date: 20210308
  Transmission Date: 20210420
  Serious: Yes (Hospitalization)
  Sender: FDA-Public Use
  Company Number: US-TEVA-2021-US-1887755

PATIENT
  Age: 68 Year
  Sex: Female

DRUGS (2)
  1. FLUOXETINE [Suspect]
     Active Substance: FLUOXETINE HYDROCHLORIDE
     Indication: DEPRESSION
     Dosage: 80 MILLIGRAM DAILY;
     Route: 065
  2. ZICONOTIDE [Interacting]
     Active Substance: ZICONOTIDE
     Indication: BACK PAIN
     Dosage: 2.4 MICROGRAM DAILY; INTRATHECAL PUMP PLACEMENT WITH ZICONOTIDE INFUSION; THE INFUSION SCHEDULED INC
     Route: 037

REACTIONS (5)
  - Confusional state [Recovered/Resolved]
  - Nystagmus [Recovered/Resolved]
  - Toxicity to various agents [Recovered/Resolved]
  - Asthenia [Recovered/Resolved]
  - Potentiating drug interaction [Unknown]
